FAERS Safety Report 8042841-8 (Version None)
Quarter: 2012Q1

REPORT INFORMATION
  Report Type: 
  Country: None (occurrence: None)
  Receive Date: 20120112
  Receipt Date: 20120109
  Transmission Date: 20120608
  Serious: Yes (Other)
  Sender: FDA-Public Use
  Company Number: US-PFIZER INC-2012007044

PATIENT
  Sex: Male
  Weight: 111 kg

DRUGS (12)
  1. PRISTIQ [Suspect]
     Indication: BIPOLAR I DISORDER
     Dosage: UNK, 2X/DAY
     Dates: start: 20120101, end: 20120101
  2. METFORMIN [Concomitant]
     Indication: DIABETES MELLITUS
     Dosage: UNK
  3. LEVEMIR [Concomitant]
     Dosage: UNK
  4. LISINOPRIL [Concomitant]
     Dosage: UNK
  5. ABILIFY [Concomitant]
     Indication: SUICIDAL IDEATION
     Dosage: UNK
  6. PRISTIQ [Suspect]
     Indication: SUICIDAL IDEATION
     Dosage: UNK, 3X/DAY
  7. LITHIUM CARBONATE [Suspect]
     Indication: BIPOLAR I DISORDER
  8. ABILIFY [Concomitant]
     Indication: BIPOLAR I DISORDER
  9. LITHIUM CARBONATE [Suspect]
     Indication: SUICIDAL IDEATION
     Dosage: UNK
  10. PRISTIQ [Suspect]
     Dosage: UNK, 1X/DAY
     Dates: start: 20120101
  11. PLAVIX [Concomitant]
     Dosage: UNK
  12. SIMVASTATIN [Concomitant]
     Indication: BLOOD CHOLESTEROL INCREASED
     Dosage: UNK

REACTIONS (2)
  - TREMOR [None]
  - ANXIETY [None]
